FAERS Safety Report 7755056-5 (Version None)
Quarter: 2011Q3

REPORT INFORMATION
  Report Type: 
  Country: None (occurrence: None)
  Receive Date: 20110913
  Receipt Date: 20110830
  Transmission Date: 20111222
  Serious: Yes (Hospitalization)
  Sender: FDA-Public Use
  Company Number: DSJ-2011-19385

PATIENT
  Age: 7 Decade
  Sex: Female

DRUGS (3)
  1. BENICAR HCT [Suspect]
     Indication: HYPERTENSION
     Dosage: 40/12.5 MG, (1 IN 1 D), PER ORAL
     Route: 048
     Dates: start: 20100101, end: 20110101
  2. ROSUVASTATIN [Concomitant]
  3. INDAPAMIDE [Concomitant]

REACTIONS (1)
  - HYSTERECTOMY [None]
